FAERS Safety Report 16094237 (Version 1)
Quarter: 2019Q1

REPORT INFORMATION
  Report Type: Spontaneous
  Country: US (occurrence: US)
  Receive Date: 20190320
  Receipt Date: 20190320
  Transmission Date: 20190418
  Serious: No
  Sender: FDA-Public Use
  Company Number: US-TEVA-2019-US-1029159

PATIENT
  Sex: Female

DRUGS (1)
  1. AJOVY [Suspect]
     Active Substance: FREMANEZUMAB-VFRM
     Route: 065

REACTIONS (6)
  - Flushing [Unknown]
  - Pruritus [Unknown]
  - Urticaria [Unknown]
  - Dry skin [Unknown]
  - Skin exfoliation [Unknown]
  - Rash [Unknown]
